FAERS Safety Report 23191571 (Version 3)
Quarter: 2023Q4

REPORT INFORMATION
  Report Type: Spontaneous
  Country: CA (occurrence: CA)
  Receive Date: 20231116
  Receipt Date: 20231221
  Transmission Date: 20240109
  Serious: Yes (Other)
  Sender: FDA-Public Use
  Company Number: CA-DUCHESNAY-2023CA000284

PATIENT
  Age: 17 Year
  Sex: Female

DRUGS (4)
  1. DROSPIRENONE [Suspect]
     Active Substance: DROSPIRENONE
     Indication: Menstrual cycle management
     Dosage: 1 DOSAGE FORM, QD
     Route: 048
     Dates: start: 202307, end: 20230924
  2. SERTRALINE [Concomitant]
     Active Substance: SERTRALINE HYDROCHLORIDE
     Indication: Anxiety
     Dosage: 150 MILLIGRAM, QD
     Dates: start: 2021
  3. SERTRALINE [Concomitant]
     Active Substance: SERTRALINE HYDROCHLORIDE
     Indication: Depression
  4. FAMOTIDINE [Concomitant]
     Active Substance: FAMOTIDINE
     Indication: Gastrooesophageal reflux disease
     Dosage: UNK

REACTIONS (5)
  - Acne [Recovering/Resolving]
  - Amenorrhoea [Recovered/Resolved]
  - Product use in unapproved indication [Recovered/Resolved]
  - Abdominal pain lower [Recovered/Resolved]
  - Hepatic steatosis [Unknown]

NARRATIVE: CASE EVENT DATE: 20230701
